FAERS Safety Report 7811900-4 (Version None)
Quarter: 2011Q4

REPORT INFORMATION
  Report Type: 
  Country: None (occurrence: None)
  Receive Date: 20111013
  Receipt Date: 20110930
  Transmission Date: 20120403
  Serious: Yes (Other)
  Sender: FDA-Public Use
  Company Number: PHHY2011BB87359

PATIENT
  Age: 60 Year
  Sex: Male

DRUGS (5)
  1. GLEEVEC [Suspect]
     Dosage: 200 MG, PER DAY
     Route: 048
  2. GLEEVEC [Suspect]
     Dosage: 800 MG, PER DAY
     Route: 048
  3. GLEEVEC [Suspect]
     Dosage: 400 MG, BID
     Route: 048
  4. GLEEVEC [Suspect]
     Dosage: 400 MG, PER DAY
     Route: 048
  5. GLEEVEC [Suspect]
     Indication: GASTROINTESTINAL STROMAL TUMOUR
     Dosage: 600 MG, PER DAY
     Route: 048
     Dates: start: 20080101

REACTIONS (6)
  - GASTROINTESTINAL STROMAL TUMOUR [None]
  - ABDOMINAL PAIN UPPER [None]
  - TEMPORAL ARTERITIS [None]
  - HEADACHE [None]
  - HEPATIC MASS [None]
  - NEOPLASM MALIGNANT [None]
